FAERS Safety Report 5260685-7 (Version None)
Quarter: 2007Q1

REPORT INFORMATION
  Report Type: 
  Country: None (occurrence: None)
  Receive Date: 20070309
  Receipt Date: 20061229
  Transmission Date: 20070707
  Serious: No
  Sender: FDA-Public Use
  Company Number: US-GLAXOSMITHKLINE-A0632681A

PATIENT
  Age: 64 Year
  Sex: Female

DRUGS (1)
  1. NICORETTE (MINT) [Suspect]
     Dates: start: 20061207

REACTIONS (4)
  - INTENTIONAL DRUG MISUSE [None]
  - IRRITABILITY [None]
  - NICOTINE DEPENDENCE [None]
  - RESTLESSNESS [None]
